FAERS Safety Report 8762040 (Version 3)
Quarter: 2013Q3

REPORT INFORMATION
  Report Type: Spontaneous
  Country: US (occurrence: US)
  Receive Date: 20120828
  Receipt Date: 20130815
  Transmission Date: 20140515
  Serious: Yes (Other)
  Sender: FDA-Public Use
  Company Number: US-PFIZER INC-2012208726

PATIENT
  Age: 46 Year
  Sex: Female
  Weight: 89.34 kg

DRUGS (9)
  1. GEODON [Suspect]
     Indication: SCHIZOAFFECTIVE DISORDER
     Dosage: UNK, 2X/DAY
     Route: 048
     Dates: end: 2013
  2. GEODON [Suspect]
     Indication: SCHIZOPHRENIA
  3. CYMBALTA [Suspect]
     Indication: FIBROMYALGIA
     Dosage: UNK
     Dates: end: 201205
  4. TOPAMAX [Suspect]
     Indication: MIGRAINE
     Dosage: UNK
  5. TOPAMAX [Suspect]
     Dosage: UNK ((DOSE OF WEAN OFF))
  6. ZYPREXA [Concomitant]
     Indication: SCHIZOAFFECTIVE DISORDER
     Dosage: 7.5 MG, UNK
  7. ATIVAN [Concomitant]
     Dosage: UNK, AS NEEDED
  8. BENADRYL [Concomitant]
     Dosage: UNK, AS NEEDED
  9. TRAZODONE [Concomitant]
     Indication: SLEEP DISORDER
     Dosage: UNK

REACTIONS (13)
  - Glaucoma [Unknown]
  - Platelet disorder [Unknown]
  - Platelet count decreased [Unknown]
  - Blood disorder [Unknown]
  - Red cell distribution width increased [Unknown]
  - White blood cell count increased [Unknown]
  - Liver function test abnormal [Unknown]
  - Gastrooesophageal reflux disease [Unknown]
  - Rhinorrhoea [Not Recovered/Not Resolved]
  - Abdominal discomfort [Unknown]
  - Rhinitis [Not Recovered/Not Resolved]
  - Somnolence [Not Recovered/Not Resolved]
  - Migraine [Unknown]
